FAERS Safety Report 15552208 (Version 1)
Quarter: 2018Q4

REPORT INFORMATION
  Report Type: Spontaneous
  Country: JP (occurrence: JP)
  Receive Date: 20181025
  Receipt Date: 20181025
  Transmission Date: 20190205
  Serious: Yes (Hospitalization)
  Sender: FDA-Public Use
  Company Number: PHJP2017JP015821

PATIENT

DRUGS (1)
  1. TOBI [Suspect]
     Active Substance: TOBRAMYCIN
     Indication: CYSTIC FIBROSIS
     Dosage: 300 MG, BID (FOR 28 DAYS)
     Route: 055

REACTIONS (2)
  - Leukopenia [Recovered/Resolved]
  - Epstein-Barr virus infection [Recovering/Resolving]

NARRATIVE: CASE EVENT DATE: 201703
